FAERS Safety Report 23097983 (Version 1)
Quarter: 2023Q4

REPORT INFORMATION
  Report Type: Spontaneous
  Country: US (occurrence: US)
  Receive Date: 20231023
  Receipt Date: 20231023
  Transmission Date: 20240109
  Serious: No
  Sender: FDA-Public Use
  Company Number: US-MYLANLABS-2023M1110335

PATIENT
  Sex: Male
  Weight: 99.79 kg

DRUGS (2)
  1. ALPRAZOLAM [Suspect]
     Active Substance: ALPRAZOLAM
     Indication: Anxiety
     Dosage: 1 MILLIGRAM, QID (4 TIMES A DAY)
     Route: 065
  2. ALPRAZOLAM [Suspect]
     Active Substance: ALPRAZOLAM
     Indication: Retinal artery occlusion

REACTIONS (4)
  - Drug ineffective [Unknown]
  - Off label use [Unknown]
  - Product taste abnormal [Unknown]
  - Product colour issue [Unknown]
